FAERS Safety Report 7951904-4 (Version None)
Quarter: 2011Q4

REPORT INFORMATION
  Report Type: 
  Country: None (occurrence: None)
  Receive Date: 20111201
  Receipt Date: 20111123
  Transmission Date: 20120403
  Serious: Yes (Hospitalization)
  Sender: FDA-Public Use
  Company Number: SE-SANOFI-AVENTIS-2011SA077216

PATIENT
  Sex: Female

DRUGS (4)
  1. SIMVASTATIN [Concomitant]
     Route: 065
  2. METOPROLOL TARTRATE [Concomitant]
     Route: 065
  3. MULTAQ [Suspect]
     Indication: ATRIAL FIBRILLATION
     Route: 048
     Dates: start: 20101010, end: 20101020
  4. WARFARIN SODIUM [Concomitant]
     Route: 065

REACTIONS (9)
  - ASTHENIA [None]
  - DYSPNOEA [None]
  - OEDEMA PERIPHERAL [None]
  - MUSCLE SPASMS [None]
  - GASTRITIS [None]
  - WEIGHT INCREASED [None]
  - OVERWEIGHT [None]
  - CARDIAC FAILURE [None]
  - ATRIAL FIBRILLATION [None]
